FAERS Safety Report 5509498-9 (Version None)
Quarter: 2007Q4

REPORT INFORMATION
  Report Type: 
  Country: None (occurrence: None)
  Receive Date: 20071107
  Receipt Date: 20071026
  Transmission Date: 20080405
  Serious: Yes (Life-Threatening, Hospitalization, Other)
  Sender: FDA-Public Use
  Company Number: FR-PFIZER INC-2007089602

PATIENT
  Age: 40 Year
  Sex: Female

DRUGS (2)
  1. SUTENT [Suspect]
     Indication: RENAL CANCER METASTATIC
     Route: 048
     Dates: start: 20071002, end: 20071011
  2. PROPOXYPHENE HYDROCHLORIDE [Concomitant]
     Route: 048

REACTIONS (6)
  - ASTHENIA [None]
  - BLOOD PRESSURE INCREASED [None]
  - CONVULSION [None]
  - ENCEPHALOPATHY [None]
  - HEMIANOPIA [None]
  - HEMIPLEGIA [None]
